APPROVED DRUG PRODUCT: CEFPODOXIME PROXETIL
Active Ingredient: CEFPODOXIME PROXETIL
Strength: EQ 200MG BASE
Dosage Form/Route: TABLET;ORAL
Application: A065462 | Product #002 | TE Code: AB
Applicant: SANDOZ INC
Approved: May 28, 2008 | RLD: No | RS: Yes | Type: RX